FAERS Safety Report 4743533-0 (Version None)
Quarter: 2005Q3

REPORT INFORMATION
  Report Type: 
  Country: None (occurrence: None)
  Receive Date: 20050812
  Receipt Date: 20050802
  Transmission Date: 20060218
  Serious: Yes (Hospitalization)
  Sender: FDA-Public Use
  Company Number: 2005AP04279

PATIENT
  Age: 80 Year
  Sex: Female

DRUGS (4)
  1. OMEPRAZOLE [Suspect]
     Indication: GASTRIC ULCER HAEMORRHAGE
     Route: 048
     Dates: start: 20050201
  2. WARFARIN [Concomitant]
     Route: 048
     Dates: end: 20041201
  3. LASIX [Concomitant]
     Route: 048
  4. DIGOSIN [Concomitant]
     Route: 048

REACTIONS (1)
  - APLASTIC ANAEMIA [None]
